FAERS Safety Report 6186049-X (Version None)
Quarter: 2009Q2

REPORT INFORMATION
  Report Type: 
  Country: None (occurrence: None)
  Receive Date: 20090511
  Receipt Date: 20090505
  Transmission Date: 20091009
  Serious: Yes (Death, Other)
  Sender: FDA-Public Use
  Company Number: TH-B.I. PHARMACEUTICALS,INC./RIDGEFIELD-2009-DE-03585GD

PATIENT

DRUGS (3)
  1. NEVIRAPINE [Suspect]
     Indication: HIV INFECTION
  2. ANTIVIRALS FOR SYSTEMIC USE [Suspect]
     Indication: HIV INFECTION
  3. RIFATER [Suspect]
     Indication: TUBERCULOSIS

REACTIONS (5)
  - DEATH [None]
  - IMMUNE RECONSTITUTION SYNDROME [None]
  - LIVER DISORDER [None]
  - PNEUMOCYSTIS JIROVECI PNEUMONIA [None]
  - PNEUMONIA [None]
